FAERS Safety Report 5157185-1 (Version None)
Quarter: 2006Q4

REPORT INFORMATION
  Report Type: 
  Country: None (occurrence: None)
  Receive Date: 20061113
  Receipt Date: 20061107
  Transmission Date: 20070319
  Serious: Yes (Hospitalization)
  Sender: FDA-Public Use
  Company Number: 200610282BBE

PATIENT
  Age: 57 Year
  Sex: Male
  Weight: 121.8362 kg

DRUGS (19)
  1. PROLASTIN [Suspect]
     Indication: ALPHA-1 ANTI-TRYPSIN DEFICIENCY
     Dosage: 200 MG/KG, Q2WK, INTRAVENOUS
     Route: 042
     Dates: start: 20060919
  2. ACETAMINOPHEN [Concomitant]
  3. ALENDRONATE SODIUM [Concomitant]
  4. ASPIRIN [Concomitant]
  5. CALCIUM CARB [Concomitant]
  6. CLOBETASOL PROPIONATE [Concomitant]
  7. DOCUSATE [Concomitant]
  8. FELODIPINE [Concomitant]
  9. FLUNISOLIDE [Concomitant]
  10. FORMOTEROL FUMARATE [Concomitant]
  11. HYDROCHLOROTHIAZIDE [Concomitant]
  12. IPRATROPIUM BROMIDE [Concomitant]
  13. LEVALBUTEROL TART [Concomitant]
  14. MOMETASONE FUROATE [Concomitant]
  15. MOXIFLOXACIN HCL [Concomitant]
  16. OMEPRAZOLE [Concomitant]
  17. SELENIUM SULFIDE [Concomitant]
  18. TERAZOSIN HCL [Concomitant]
  19. THEOPHYLLINE [Concomitant]

REACTIONS (9)
  - BLOOD PRESSURE INCREASED [None]
  - CEREBROVASCULAR ACCIDENT [None]
  - CHILLS [None]
  - HYPERHIDROSIS [None]
  - LABYRINTHITIS [None]
  - MIGRAINE [None]
  - SEDATION [None]
  - TINNITUS [None]
  - VIRAL INFECTION [None]
